FAERS Safety Report 8839718 (Version 1)
Quarter: 2012Q4

REPORT INFORMATION
  Report Type: Spontaneous
  Country: IT (occurrence: None)
  Receive Date: 20121011
  Receipt Date: 20121011
  Transmission Date: 20130627
  Serious: Yes (Hospitalization)
  Sender: FDA-Public Use
  Company Number: EU-2012-10256

PATIENT
  Age: 70 Year
  Sex: Male

DRUGS (2)
  1. PLETAL [Suspect]
     Indication: MYOCARDIAL ISCHAEMIA
     Dates: start: 20120919
  2. PLETAL [Suspect]
     Indication: OFF LABEL USE
     Dates: start: 20120919

REACTIONS (2)
  - Tachycardia [None]
  - Cold sweat [None]
